FAERS Safety Report 9828339 (Version 1)
Quarter: 2014Q1

REPORT INFORMATION
  Report Type: Spontaneous
  Country: US (occurrence: US)
  Receive Date: 20140117
  Receipt Date: 20140117
  Transmission Date: 20141002
  Serious: Yes (Death)
  Sender: FDA-Public Use
  Company Number: US-GLAXOSMITHKLINE-A1056397A

PATIENT
  Age: 54 Year
  Sex: Male

DRUGS (2)
  1. ARIXTRA [Suspect]
     Indication: THROMBOSIS
     Dosage: 8.5MG PER DAY
     Route: 058
     Dates: start: 20130401
  2. CONCURRENT MEDICATIONS [Concomitant]

REACTIONS (2)
  - Lung cancer metastatic [Fatal]
  - Hospice care [Unknown]
